FAERS Safety Report 5064177-X (Version None)
Quarter: 2006Q3

REPORT INFORMATION
  Report Type: 
  Country: None (occurrence: None)
  Receive Date: 20060728
  Receipt Date: 20060331
  Transmission Date: 20061208
  Serious: No
  Sender: FDA-Public Use
  Company Number: US-GLAXOSMITHKLINE-A0600965A

PATIENT
  Age: 4 Month
  Sex: Male

DRUGS (2)
  1. ZANTAC [Suspect]
     Dosage: 1ML THREE TIMES PER DAY
     Route: 048
  2. NO CONCURRENT MEDICATION [Concomitant]

REACTIONS (3)
  - ILL-DEFINED DISORDER [None]
  - IRRITABILITY [None]
  - VOMITING [None]
